FAERS Safety Report 4996060-X (Version None)
Quarter: 2006Q2

REPORT INFORMATION
  Report Type: 
  Country: None (occurrence: None)
  Receive Date: 20060508
  Receipt Date: 20060124
  Transmission Date: 20061013
  Serious: Yes (Death, Hospitalization)
  Sender: FDA-Public Use
  Company Number: US-MERCK-0601USA02930

PATIENT
  Age: 85 Year
  Sex: Female
  Weight: 50 kg

DRUGS (10)
  1. VIOXX [Suspect]
     Indication: OSTEOARTHRITIS
     Route: 048
     Dates: start: 20001201, end: 20040120
  2. VIOXX [Suspect]
     Indication: INFLAMMATION
     Route: 048
     Dates: start: 20001201, end: 20040120
  3. PAXIL [Concomitant]
     Route: 065
  4. DILTIAZEM MSD [Concomitant]
     Route: 065
  5. NEXIUM [Concomitant]
     Route: 065
  6. CARDIZEM [Concomitant]
     Route: 065
  7. PREVACID [Concomitant]
     Route: 065
  8. ASPIRIN [Concomitant]
     Route: 065
  9. TAZTIA XT [Concomitant]
     Route: 065
  10. VIGAMOX [Concomitant]
     Route: 065

REACTIONS (2)
  - EYE OPERATION [None]
  - MYOCARDIAL INFARCTION [None]
